FAERS Safety Report 12469096 (Version 2)
Quarter: 2016Q3

REPORT INFORMATION
  Report Type: Report from Study
  Country: US (occurrence: US)
  Receive Date: 20160615
  Receipt Date: 20160719
  Transmission Date: 20161109
  Serious: Yes (Death, Other)
  Sender: FDA-Public Use
  Company Number: US-GILEAD-2016-0219128

PATIENT
  Age: 79 Year
  Sex: Female

DRUGS (17)
  1. AMBRISENTAN [Suspect]
     Active Substance: AMBRISENTAN
     Indication: PULMONARY HYPERTENSION
     Dosage: 5 MG, QD
     Route: 065
     Dates: start: 201506
  2. VITAMIN B12 [Concomitant]
     Active Substance: CYANOCOBALAMIN
  3. CALCIUM CARBONATE. [Concomitant]
     Active Substance: CALCIUM CARBONATE
  4. DIGOXIN. [Concomitant]
     Active Substance: DIGOXIN
  5. COMBIVENT [Concomitant]
     Active Substance: ALBUTEROL SULFATE\IPRATROPIUM BROMIDE
  6. VITAMIN D [Concomitant]
     Active Substance: CHOLECALCIFEROL
  7. PLAVIX [Concomitant]
     Active Substance: CLOPIDOGREL BISULFATE
  8. ALDACTONE [Concomitant]
     Active Substance: SPIRONOLACTONE
  9. ADCIRCA [Concomitant]
     Active Substance: TADALAFIL
  10. LEVOTHYROXINE. [Concomitant]
     Active Substance: LEVOTHYROXINE
  11. AMBRISENTAN [Suspect]
     Active Substance: AMBRISENTAN
     Indication: SCLERODERMA
  12. TIKOSYN [Concomitant]
     Active Substance: DOFETILIDE
  13. TORSEMIDE. [Concomitant]
     Active Substance: TORSEMIDE
  14. LASIX [Concomitant]
     Active Substance: FUROSEMIDE
  15. ASPIRIN                            /00002701/ [Concomitant]
     Active Substance: ASPIRIN
  16. PROTONIX                           /00661201/ [Concomitant]
     Active Substance: OMEPRAZOLE
  17. METOLAZONE. [Concomitant]
     Active Substance: METOLAZONE

REACTIONS (1)
  - Pulmonary arterial hypertension [Fatal]
